FAERS Safety Report 16214559 (Version 2)
Quarter: 2020Q1

REPORT INFORMATION
  Report Type: Report from Study
  Country: US (occurrence: US)
  Receive Date: 20190418
  Receipt Date: 20200219
  Transmission Date: 20200409
  Serious: Yes (Death, Hospitalization, Other)
  Sender: FDA-Public Use
  Company Number: US-ACTELION-A-NJ2018-184182

PATIENT
  Age: 71 Year
  Sex: Male

DRUGS (2)
  1. OXYGEN. [Concomitant]
     Active Substance: OXYGEN
     Dosage: UNK
  2. OPSUMIT [Suspect]
     Active Substance: MACITENTAN
     Indication: PULMONARY ARTERIAL HYPERTENSION
     Dosage: 10 MG, QD
     Route: 048

REACTIONS (7)
  - Lung neoplasm malignant [Fatal]
  - Contusion [Unknown]
  - Atrial fibrillation [Recovered/Resolved]
  - Gastrooesophageal reflux disease [Unknown]
  - Pneumonia [Fatal]
  - Road traffic accident [Unknown]
  - Disease complication [Fatal]

NARRATIVE: CASE EVENT DATE: 20190227
